FAERS Safety Report 7978100-9 (Version None)
Quarter: 2011Q4

REPORT INFORMATION
  Report Type: 
  Country: None (occurrence: None)
  Receive Date: 20111201
  Receipt Date: 20111117
  Transmission Date: 20120403
  Serious: Yes (Other)
  Sender: FDA-Public Use
  Company Number: 2011SP050908

PATIENT
  Age: 56 Year
  Sex: Female

DRUGS (1)
  1. PEGETRON (PEGYLATED INTERFERON ALFA-2B W/RIBAVIRIN) [Suspect]
     Indication: HEPATITIS C
     Dosage: 0.5 ML; SC
     Route: 058
     Dates: start: 20111012

REACTIONS (14)
  - CONTUSION [None]
  - FATIGUE [None]
  - NAUSEA [None]
  - EPISTAXIS [None]
  - PAIN [None]
  - PYREXIA [None]
  - PLATELET COUNT DECREASED [None]
  - WEIGHT DECREASED [None]
  - ALOPECIA [None]
  - MUSCLE SPASMS [None]
  - ARTHROPOD STING [None]
  - BLOOD COUNT ABNORMAL [None]
  - ABASIA [None]
  - MUSCULOSKELETAL STIFFNESS [None]
